FAERS Safety Report 16333068 (Version 3)
Quarter: 2019Q3

REPORT INFORMATION
  Report Type: Spontaneous
  Country: IT (occurrence: IT)
  Receive Date: 20190520
  Receipt Date: 20190709
  Transmission Date: 20191004
  Serious: Yes (Death, Hospitalization, Other)
  Sender: FDA-Public Use
  Company Number: IT-AMGEN-ITASP2019076431

PATIENT
  Age: 4 Year
  Sex: Male
  Weight: 12.3 kg

DRUGS (6)
  1. BLINATUMOMAB [Suspect]
     Active Substance: BLINATUMOMAB
     Indication: ACUTE LYMPHOCYTIC LEUKAEMIA RECURRENT
     Dosage: 5 MG/MQ
     Route: 042
     Dates: start: 20170119, end: 20170125
  2. PREDNISONE. [Concomitant]
     Active Substance: PREDNISONE
     Indication: LEUKAEMIA
     Dosage: UNK
     Dates: start: 20170127, end: 20170131
  3. PIPERACILLIN AND TAZOBACTAM [Concomitant]
     Active Substance: PIPERACILLIN SODIUM\TAZOBACTAM SODIUM
     Indication: FEBRILE NEUTROPENIA
     Dosage: 1000 MILLIGRAM, QID
     Dates: start: 20170120, end: 20170201
  4. DESAMETASONE [Concomitant]
     Active Substance: DEXAMETHASONE
     Dosage: 2 MILLIGRAM, TID
     Dates: start: 20170201, end: 20170220
  5. BLINATUMOMAB [Suspect]
     Active Substance: BLINATUMOMAB
     Dosage: 15 MG/MQ
     Route: 042
     Dates: start: 20170125, end: 20170202
  6. FLUCONAZOLE. [Concomitant]
     Active Substance: FLUCONAZOLE
     Indication: FEBRILE NEUTROPENIA
     Dosage: 130 MILLIGRAM, QD
     Dates: start: 20170119, end: 20170220

REACTIONS (1)
  - Acute lymphocytic leukaemia [Fatal]

NARRATIVE: CASE EVENT DATE: 20170126
